FAERS Safety Report 7988865-8 (Version None)
Quarter: 2011Q4

REPORT INFORMATION
  Report Type: 
  Country: None (occurrence: None)
  Receive Date: 20111219
  Receipt Date: 20111209
  Transmission Date: 20120403
  Serious: Yes (Other)
  Sender: FDA-Public Use
  Company Number: US-JNJFOC-20111204964

PATIENT
  Sex: Female

DRUGS (15)
  1. LOPRESSOR [Concomitant]
  2. COLACE [Concomitant]
  3. CLEOCIN HYDROCHLORIDE [Concomitant]
  4. DIGOXIN [Concomitant]
  5. ULTRAM [Concomitant]
  6. LASIX [Concomitant]
  7. DECADRON [Concomitant]
  8. ZOFRAN [Concomitant]
  9. IRON [Concomitant]
  10. PRINIVIL [Concomitant]
  11. XARELTO [Suspect]
     Indication: HIP ARTHROPLASTY
     Route: 048
     Dates: start: 20111201, end: 20111208
  12. INSULIN [Concomitant]
  13. LYRICA [Concomitant]
  14. VANCOMYCIN [Concomitant]
  15. NORCO [Concomitant]

REACTIONS (1)
  - DEEP VEIN THROMBOSIS [None]
